FAERS Safety Report 24010134 (Version 2)
Quarter: 2024Q2

REPORT INFORMATION
  Report Type: Spontaneous
  Country: CZ (occurrence: CZ)
  Receive Date: 20240625
  Receipt Date: 20240628
  Transmission Date: 20240716
  Serious: Yes (Life-Threatening, Hospitalization)
  Sender: FDA-Public Use
  Company Number: CZ-LESVI-2024003315

PATIENT
  Age: 46 Year
  Sex: Male

DRUGS (14)
  1. OLANZAPINE [Suspect]
     Active Substance: OLANZAPINE
     Indication: Schizophrenia
     Dosage: 30 MILLIGRAM, QD (ON THE 3RD DAY SWITCHED TO 30 MG PER DAY ORALLY)
     Route: 048
  2. OLANZAPINE [Suspect]
     Active Substance: OLANZAPINE
     Dosage: 20 MILLIGRAM, QD (20 MG PER DAY)
     Route: 065
  3. OLANZAPINE [Suspect]
     Active Substance: OLANZAPINE
     Dosage: 20 MILLIGRAM, QD
     Route: 065
  4. SERTRALINE [Suspect]
     Active Substance: SERTRALINE HYDROCHLORIDE
     Indication: Schizophrenia
     Dosage: 100 MILLIGRAM, QD (100 MG PER DAY)
     Route: 065
  5. ARIPIPRAZOLE [Suspect]
     Active Substance: ARIPIPRAZOLE
     Indication: Schizophrenia
     Dosage: 15 MILLIGRAM, QD (15 MG PER DAY)
     Route: 065
  6. MIDAZOLAM [Concomitant]
     Active Substance: MIDAZOLAM
     Indication: Catatonia
     Dosage: 5 MILLIGRAM, QD (5 MG PER DAY)
     Route: 065
  7. CEFUROXIME [Concomitant]
     Active Substance: CEFUROXIME
     Indication: Pyrexia
     Route: 065
  8. CEFUROXIME [Concomitant]
     Active Substance: CEFUROXIME
     Indication: C-reactive protein increased
  9. BROMOCRIPTINE [Concomitant]
     Active Substance: BROMOCRIPTINE
     Indication: Catatonia
     Dosage: 7.5 MILLIGRAM, QD (7.5 MG PER DAY)
     Route: 065
  10. CLONAZEPAM [Concomitant]
     Active Substance: CLONAZEPAM
     Indication: Catatonia
     Dosage: 4 MILLIGRAM, QD (4 MG PER DAY)
     Route: 065
  11. CLONAZEPAM [Concomitant]
     Active Substance: CLONAZEPAM
     Dosage: 8 MILLIGRAM, QD (8 MG PER DAY)
     Route: 065
  12. OLANZAPINE [Concomitant]
     Active Substance: OLANZAPINE
     Indication: Schizophrenia
     Dosage: 20 MILLIGRAM, QD (20 MG PER DAY)
     Route: 065
  13. SULFAMETHOXAZOLE [Concomitant]
     Active Substance: SULFAMETHOXAZOLE
     Indication: C-reactive protein increased
     Dosage: UNK
     Route: 065
  14. SULFAMETHOXAZOLE [Concomitant]
     Active Substance: SULFAMETHOXAZOLE
     Indication: Pyrexia

REACTIONS (3)
  - Catatonia [Recovered/Resolved]
  - Blood glucose increased [Unknown]
  - Therapy cessation [Unknown]
